FAERS Safety Report 6233533-6 (Version None)
Quarter: 2009Q2

REPORT INFORMATION
  Report Type: 
  Country: None (occurrence: None)
  Receive Date: 20090615
  Receipt Date: 20090610
  Transmission Date: 20091009
  Serious: Yes (Life-Threatening)
  Sender: FDA-Public Use
  Company Number: 2008AL009024

PATIENT
  Age: 84 Year
  Sex: Female
  Weight: 80.2867 kg

DRUGS (11)
  1. DIGOXIN [Suspect]
     Indication: CARDIAC DISORDER
     Dosage: 0.125MG, DAILY, PO
     Route: 048
     Dates: start: 20070221, end: 20080508
  2. VERAPAMIL [Concomitant]
  3. ISOSORB MONO [Concomitant]
  4. LISINOPRIL [Concomitant]
  5. PROVASTIN [Concomitant]
  6. OXYGEN [Concomitant]
  7. ADVAIR HFA [Concomitant]
  8. SPIRIVA [Concomitant]
  9. PROMIDONE [Concomitant]
  10. EVISTA [Concomitant]
  11. OMEPRAZOLE [Concomitant]

REACTIONS (10)
  - ABASIA [None]
  - ALTERED STATE OF CONSCIOUSNESS [None]
  - ASTHENIA [None]
  - CARDIOACTIVE DRUG LEVEL INCREASED [None]
  - DIZZINESS [None]
  - DYSPNOEA [None]
  - FAECES DISCOLOURED [None]
  - GAIT DISTURBANCE [None]
  - PALPITATIONS [None]
  - VOMITING [None]
